FAERS Safety Report 9360908 (Version 1)
Quarter: 2013Q2

REPORT INFORMATION
  Report Type: Spontaneous
  Country: US (occurrence: None)
  Receive Date: 20130620
  Receipt Date: 20130620
  Transmission Date: 20140414
  Serious: Yes (Hospitalization)
  Sender: FDA-Public Use
  Company Number: None

PATIENT
  Age: 90 Year
  Sex: Male
  Weight: 86.1 kg

DRUGS (1)
  1. WARFARIN [Suspect]
     Indication: TRANSIENT ISCHAEMIC ATTACK
     Dosage: 3.75 MG EVERY DAY PO
     Route: 048
     Dates: start: 20091020, end: 20130616

REACTIONS (2)
  - International normalised ratio increased [None]
  - Haemorrhoidal haemorrhage [None]
